FAERS Safety Report 6321981-5 (Version None)
Quarter: 2009Q3

REPORT INFORMATION
  Report Type: 
  Country: None (occurrence: None)
  Receive Date: 20090812
  Receipt Date: 20090617
  Transmission Date: 20100115
  Serious: No
  Sender: FDA-Public Use
  Company Number: WAES 0906USA03659

PATIENT
  Age: 24 Year
  Sex: Female

DRUGS (3)
  1. ISENTRESS [Suspect]
     Indication: HIV INFECTION
     Dosage: 400 MG/BID/PO
     Route: 048
     Dates: start: 20090401, end: 20090617
  2. INTELENCE [Concomitant]
  3. TRUVADA [Concomitant]

REACTIONS (4)
  - FATIGUE [None]
  - NAUSEA [None]
  - PAIN [None]
  - SKIN DISCOLOURATION [None]
